FAERS Safety Report 11333183 (Version 1)
Quarter: 2015Q3

REPORT INFORMATION
  Report Type: Spontaneous
  Country: US (occurrence: US)
  Receive Date: 20150803
  Receipt Date: 20150803
  Transmission Date: 20151125
  Serious: Yes (Hospitalization)
  Sender: FDA-Public Use
  Company Number: US-ELI_LILLY_AND_COMPANY-US200709002255

PATIENT
  Age: 20 Year
  Sex: Male
  Weight: 92.06 kg

DRUGS (4)
  1. ZYPREXA [Suspect]
     Active Substance: OLANZAPINE
     Dosage: 10 MG, UNK
     Dates: start: 20070801, end: 20070827
  2. EFFEXOR [Concomitant]
     Active Substance: VENLAFAXINE HYDROCHLORIDE
  3. KLONOPIN [Concomitant]
     Active Substance: CLONAZEPAM
  4. ZYPREXA [Suspect]
     Active Substance: OLANZAPINE
     Indication: BIPOLAR DISORDER
     Dosage: 5 MG, UNK
     Dates: start: 20070709, end: 20070718

REACTIONS (6)
  - Aspartate aminotransferase increased [Recovered/Resolved]
  - Blood triglycerides increased [Recovered/Resolved]
  - Weight increased [Recovering/Resolving]
  - Low density lipoprotein increased [Recovering/Resolving]
  - Hypercholesterolaemia [Recovered/Resolved]
  - Alanine aminotransferase increased [Recovered/Resolved]

NARRATIVE: CASE EVENT DATE: 200707
